FAERS Safety Report 12018729 (Version 1)
Quarter: 2016Q1

REPORT INFORMATION
  Report Type: Report from Study
  Country: US (occurrence: US)
  Receive Date: 20160205
  Receipt Date: 20160205
  Transmission Date: 20160526
  Serious: No
  Sender: FDA-Public Use
  Company Number: US-ABBVIE-15K-163-1457639-00

PATIENT
  Age: 40 Year
  Sex: Female

DRUGS (1)
  1. HUMIRA [Suspect]
     Active Substance: ADALIMUMAB
     Indication: PRODUCT USED FOR UNKNOWN INDICATION
     Route: 065
     Dates: start: 20150714

REACTIONS (9)
  - Nausea [Unknown]
  - Pain [Unknown]
  - Chest discomfort [Recovered/Resolved]
  - Constipation [Recovered/Resolved]
  - Crohn^s disease [Unknown]
  - Dyspnoea [Recovered/Resolved]
  - Haematochezia [Unknown]
  - Asthenia [Unknown]
  - Kidney infection [Recovered/Resolved]

NARRATIVE: CASE EVENT DATE: 201507
